FAERS Safety Report 17897318 (Version 6)
Quarter: 2023Q2

REPORT INFORMATION
  Report Type: Spontaneous
  Country: US (occurrence: US)
  Receive Date: 20200615
  Receipt Date: 20230615
  Transmission Date: 20230721
  Serious: Yes (Other)
  Sender: FDA-Public Use
  Company Number: US-PFIZER INC-2020141451

PATIENT
  Age: 64 Year
  Sex: Female

DRUGS (5)
  1. XELJANZ XR [Suspect]
     Active Substance: TOFACITINIB CITRATE
     Indication: Psoriatic arthropathy
     Dosage: 11 MG, DAILY
     Route: 048
     Dates: start: 202002
  2. XELJANZ XR [Suspect]
     Active Substance: TOFACITINIB CITRATE
     Dosage: 11 MG, DAILY
     Route: 048
     Dates: start: 2021
  3. METHOTREXATE [Concomitant]
     Active Substance: METHOTREXATE
     Indication: Pain
     Dosage: UNK
     Route: 048
  4. TRAMADOL [Concomitant]
     Active Substance: TRAMADOL
     Indication: Pain
     Dosage: UNK
  5. PANTOPRAZOLE [Concomitant]
     Active Substance: PANTOPRAZOLE
     Dosage: UNK

REACTIONS (13)
  - Psoriatic arthropathy [Unknown]
  - Diverticulitis [Recovering/Resolving]
  - Neuropathy peripheral [Unknown]
  - Drug ineffective [Unknown]
  - Dysstasia [Unknown]
  - Hypoaesthesia [Unknown]
  - Arthralgia [Unknown]
  - Peripheral swelling [Unknown]
  - Fibromyalgia [Unknown]
  - Constipation [Unknown]
  - Eructation [Unknown]
  - Skin discolouration [Unknown]
  - Hepatic steatosis [Unknown]
